FAERS Safety Report 22600400 (Version 1)
Quarter: 2023Q2

REPORT INFORMATION
  Report Type: Report from Study
  Country: US (occurrence: US)
  Receive Date: 20230614
  Receipt Date: 20230614
  Transmission Date: 20230721
  Serious: No
  Sender: FDA-Public Use
  Company Number: US-AGIOS-2306US03391

PATIENT
  Age: 66 Year
  Sex: Male

DRUGS (4)
  1. MITAPIVAT [Suspect]
     Active Substance: MITAPIVAT
     Indication: Pyruvate kinase deficiency anaemia
     Dosage: 20 MILLIGRAM
     Route: 048
     Dates: start: 202205
  2. MITAPIVAT [Suspect]
     Active Substance: MITAPIVAT
     Dosage: 30 MILLIGRAM
     Route: 048
     Dates: start: 202205
  3. MITAPIVAT [Suspect]
     Active Substance: MITAPIVAT
     Dosage: 50 MILLIGRAM
     Route: 048
     Dates: start: 202205
  4. MITAPIVAT [Suspect]
     Active Substance: MITAPIVAT
     Dosage: 50 MILLIGRAM, BID
     Route: 048
     Dates: start: 202205

REACTIONS (1)
  - Fatigue [Recovered/Resolved]
